FAERS Safety Report 9628903 (Version 1)
Quarter: 2013Q4

REPORT INFORMATION
  Report Type: Spontaneous
  Country: BE (occurrence: BE)
  Receive Date: 20131017
  Receipt Date: 20131017
  Transmission Date: 20140711
  Serious: Yes (Hospitalization, Other)
  Sender: FDA-Public Use
  Company Number: BE-JNJFOC-20131006130

PATIENT
  Sex: 0

DRUGS (10)
  1. ABCIXIMAB [Suspect]
     Indication: MYOCARDIAL INFARCTION
     Dosage: INFUSION
     Route: 042
  2. ABCIXIMAB [Suspect]
     Indication: MYOCARDIAL INFARCTION
     Dosage: BOLUS
     Route: 042
  3. ABCIXIMAB [Suspect]
     Indication: PERCUTANEOUS CORONARY INTERVENTION
     Dosage: BOLUS
     Route: 042
  4. ABCIXIMAB [Suspect]
     Indication: PERCUTANEOUS CORONARY INTERVENTION
     Dosage: INFUSION
     Route: 042
  5. ASPIRIN [Suspect]
     Indication: MYOCARDIAL INFARCTION
     Route: 048
  6. ASPIRIN [Suspect]
     Indication: PERCUTANEOUS CORONARY INTERVENTION
     Route: 048
  7. CLOPIDOGREL [Suspect]
     Indication: MYOCARDIAL INFARCTION
     Route: 065
  8. CLOPIDOGREL [Suspect]
     Indication: PERCUTANEOUS CORONARY INTERVENTION
     Route: 065
  9. UNFRACTIONATED HEPARIN [Suspect]
     Indication: MYOCARDIAL INFARCTION
     Route: 065
  10. UNFRACTIONATED HEPARIN [Suspect]
     Indication: PERCUTANEOUS CORONARY INTERVENTION
     Route: 065

REACTIONS (4)
  - Cardiovascular disorder [Unknown]
  - Infarction [Unknown]
  - Vascular operation [Unknown]
  - Haemorrhage [Unknown]
